FAERS Safety Report 21766596 (Version 1)
Quarter: 2022Q4

REPORT INFORMATION
  Report Type: Spontaneous
  Country: US (occurrence: None)
  Receive Date: 20221222
  Receipt Date: 20221222
  Transmission Date: 20230113
  Serious: Yes (unspecified)
  Sender: FDA-Public Use
  Company Number: None

PATIENT
  Sex: Female

DRUGS (3)
  1. ADVIL [Suspect]
     Active Substance: IBUPROFEN
     Indication: Pain
     Dates: start: 20221001
  2. UNSPECIFIED INGREDIENT [Suspect]
     Active Substance: UNSPECIFIED INGREDIENT
  3. ADVIL [Suspect]
     Active Substance: IBUPROFEN
     Indication: Inflammation

REACTIONS (3)
  - Expired product administered [None]
  - Inadequate analgesia [None]
  - Palpitations [None]

NARRATIVE: CASE EVENT DATE: 20221001
